FAERS Safety Report 20451119 (Version 3)
Quarter: 2022Q1

REPORT INFORMATION
  Report Type: Spontaneous
  Country: GB (occurrence: GB)
  Receive Date: 20220209
  Receipt Date: 20220221
  Transmission Date: 20220423
  Serious: Yes (Death)
  Sender: FDA-Public Use
  Company Number: None

PATIENT
  Age: 71 Year
  Sex: Female
  Weight: 41.27 kg

DRUGS (1)
  1. XARELTO [Suspect]
     Active Substance: RIVAROXABAN
     Indication: Pulmonary embolism
     Dosage: 1 DF, UNK
     Route: 048
     Dates: start: 20201212, end: 20201216

REACTIONS (7)
  - Asthenia [Fatal]
  - Hypersomnia [Fatal]
  - Adrenocortical insufficiency acute [Fatal]
  - Adrenal gland cancer [Fatal]
  - Gastritis [Fatal]
  - Metastases to liver [Fatal]
  - Tumour haemorrhage [Fatal]
